FAERS Safety Report 16945121 (Version 1)
Quarter: 2019Q4

REPORT INFORMATION
  Report Type: Spontaneous
  Country: US (occurrence: US)
  Receive Date: 20191022
  Receipt Date: 20191022
  Transmission Date: 20200122
  Serious: No
  Sender: FDA-Public Use
  Company Number: US-JNJFOC-20191022807

PATIENT
  Sex: Male

DRUGS (2)
  1. PREZCOBIX [Suspect]
     Active Substance: COBICISTAT\DARUNAVIR ETHANOLATE
     Indication: PRODUCT USED FOR UNKNOWN INDICATION
     Dosage: 800 (UNSPECIFIED)
     Route: 048
  2. EMTRICITABINE W/TENOFOVIR ALAFENAMIDE FUMARAT [Suspect]
     Active Substance: EMTRICITABINE\TENOFOVIR
     Indication: PRODUCT USED FOR UNKNOWN INDICATION
     Route: 065

REACTIONS (2)
  - Viral load increased [Not Recovered/Not Resolved]
  - Treatment noncompliance [Unknown]
